FAERS Safety Report 10776981 (Version 1)
Quarter: 2015Q1

REPORT INFORMATION
  Report Type: Spontaneous
  Country: JP (occurrence: JP)
  Receive Date: 20150209
  Receipt Date: 20150209
  Transmission Date: 20150721
  Serious: Yes (Hospitalization, Other)
  Sender: FDA-Public Use
  Company Number: JP-BRACCO-008630

PATIENT
  Age: 77 Year
  Sex: Male
  Weight: 74 kg

DRUGS (9)
  1. ALLOPURINOL. [Concomitant]
     Active Substance: ALLOPURINOL
  2. CIBENZOLINE SUCCINATE [Concomitant]
     Active Substance: CIFENLINE SUCCINATE
  3. IOPAMIRON [Suspect]
     Active Substance: IOPAMIDOL
     Indication: ARTERIOGRAM CORONARY
     Route: 022
     Dates: start: 20141126, end: 20141126
  4. TICLOPIDINE HYDROCHLORIDE. [Concomitant]
     Active Substance: TICLOPIDINE HYDROCHLORIDE
  5. ENCHININ [Concomitant]
  6. BEZATOL [Concomitant]
     Active Substance: BEZAFIBRATE
  7. AMLODIPINE [Concomitant]
     Active Substance: AMLODIPINE BESYLATE
     Dates: start: 20141126
  8. ATORVASTATIN [Concomitant]
     Active Substance: ATORVASTATIN
  9. BAYASPIRIN [Concomitant]
     Active Substance: ASPIRIN

REACTIONS (2)
  - Anaphylactic shock [Recovered/Resolved]
  - Arteriospasm coronary [Recovering/Resolving]

NARRATIVE: CASE EVENT DATE: 20141126
